FAERS Safety Report 14229787 (Version 1)
Quarter: 2017Q4

REPORT INFORMATION
  Report Type: Spontaneous
  Country: US (occurrence: US)
  Receive Date: 20171128
  Receipt Date: 20171128
  Transmission Date: 20180321
  Serious: Yes (Hospitalization)
  Sender: FDA-Public Use
  Company Number: US-ANTARES PHARMA, INC.-2016-LIT-ME-0358

PATIENT
  Age: 19 Year
  Sex: Male

DRUGS (3)
  1. METHOTREXATE. [Suspect]
     Active Substance: METHOTREXATE
     Indication: UVEITIS
     Dosage: UNK
     Route: 065
  2. INFLIXIMAB [Suspect]
     Active Substance: INFLIXIMAB
     Indication: UVEITIS
     Dosage: UNK
  3. METHOTREXATE. [Suspect]
     Active Substance: METHOTREXATE
     Indication: OFF LABEL USE

REACTIONS (10)
  - Pyrexia [Recovered/Resolved]
  - Off label use [Unknown]
  - Haemoptysis [Recovered/Resolved]
  - Acute pulmonary histoplasmosis [Recovered/Resolved]
  - Cough [Recovered/Resolved]
  - Sputum discoloured [Recovered/Resolved]
  - Chest pain [Recovered/Resolved]
  - Dyspnoea exertional [Recovered/Resolved]
  - Chills [Recovered/Resolved]
  - Night sweats [Recovered/Resolved]
